FAERS Safety Report 16040131 (Version 1)
Quarter: 2019Q2

REPORT INFORMATION
  Report Type: Spontaneous
  Country: US (occurrence: US)
  Receive Date: 20190305
  Receipt Date: 20190305
  Transmission Date: 20190711
  Serious: Yes (Other)
  Sender: FDA-Public Use
  Company Number: None

PATIENT
  Age: 78 Year
  Sex: Male
  Weight: 81 kg

DRUGS (5)
  1. VITAMIN D NOS [Concomitant]
     Active Substance: VITAMIN D NOS
  2. CLINDAMYCIN. [Suspect]
     Active Substance: CLINDAMYCIN
     Indication: TOOTH INFECTION
     Dosage: ?          QUANTITY:1 CAPSULE(S);?
     Route: 048
     Dates: start: 20190301, end: 20190303
  3. DAILY VITAMIN [Concomitant]
     Active Substance: VITAMINS
  4. OMEGA 3 [Concomitant]
     Active Substance: OMEGA-3 FATTY ACIDS
  5. GENERIC STATIN [Concomitant]

REACTIONS (1)
  - Swelling [None]

NARRATIVE: CASE EVENT DATE: 20190303
